FAERS Safety Report 4579551-5 (Version None)
Quarter: 2005Q1

REPORT INFORMATION
  Report Type: 
  Country: None (occurrence: None)
  Receive Date: 20050209
  Receipt Date: 20050209
  Transmission Date: 20050727
  Serious: Yes (Death)
  Sender: FDA-Public Use
  Company Number: None

PATIENT
  Sex: Male
  Weight: 82.5547 kg

DRUGS (3)
  1. VIAGRA [Suspect]
     Indication: ERECTILE DYSFUNCTION
     Dosage: 50 MG ONCE PO
     Route: 048
  2. CRESTOR [Concomitant]
  3. GLUCOPHAGE [Concomitant]

REACTIONS (1)
  - SUDDEN DEATH [None]
